FAERS Safety Report 9858471 (Version 1)
Quarter: 2014Q1

REPORT INFORMATION
  Report Type: Spontaneous
  Country: HU (occurrence: HU)
  Receive Date: 20140131
  Receipt Date: 20140131
  Transmission Date: 20141002
  Serious: Yes (Death)
  Sender: FDA-Public Use
  Company Number: HU-MPIJNJ-2014JNJ000188

PATIENT
  Sex: 0

DRUGS (3)
  1. VELCADE [Suspect]
     Indication: PLASMA CELL MYELOMA
     Route: 065
  2. REVLIMID [Concomitant]
     Indication: PLASMA CELL MYELOMA
  3. DEXAMETHASONE [Concomitant]
     Indication: PLASMA CELL MYELOMA

REACTIONS (1)
  - Sudden cardiac death [Fatal]
